FAERS Safety Report 4488094-9 (Version None)
Quarter: 2004Q4

REPORT INFORMATION
  Report Type: 
  Country: None (occurrence: None)
  Receive Date: 20041028
  Receipt Date: 20041020
  Transmission Date: 20050328
  Serious: Yes (Other)
  Sender: FDA-Public Use
  Company Number: NZ-GLAXOSMITHKLINE-B0349477A

PATIENT
  Age: 49 Year
  Sex: Male

DRUGS (3)
  1. AVANDIA [Suspect]
     Dosage: 8MG PER DAY
     Route: 048
  2. METFORMIN HCL [Concomitant]
     Route: 065
  3. REDUCTIL [Concomitant]
     Route: 065

REACTIONS (2)
  - ANAEMIA [None]
  - THROMBOCYTOPENIA [None]
